FAERS Safety Report 8474905-9 (Version None)
Quarter: 2012Q2

REPORT INFORMATION
  Report Type: 
  Country: None (occurrence: None)
  Receive Date: 20120628
  Receipt Date: 20120620
  Transmission Date: 20120825
  Serious: Yes (Hospitalization)
  Sender: FDA-Public Use
  Company Number: US-UCBSA-042542

PATIENT
  Age: 23 Year
  Sex: Male
  Weight: 47.73 kg

DRUGS (13)
  1. LEVAQUIN [Concomitant]
  2. VITAMIN D [Concomitant]
  3. ASCORBIC ACID [Concomitant]
  4. CIMZIA [Suspect]
     Route: 058
     Dates: start: 20100326, end: 20101213
  5. TRAZODONE HCL [Concomitant]
     Dosage: AT NIGHT
  6. MULTI-VITAMIN [Concomitant]
     Dosage: DAILY
  7. MERCAPTOPURINE [Concomitant]
     Dosage: DAILY
  8. CIMZIA [Suspect]
     Indication: CROHN'S DISEASE
     Route: 058
     Dates: start: 20110114
  9. MERCAPTOPURINE [Concomitant]
     Dosage: DAILY
     Route: 048
     Dates: start: 20100401
  10. PERCOCET [Concomitant]
     Indication: PAIN
     Dosage: 5/325MG 1-2 TABLETS; Q4H
     Route: 048
  11. ONDANSETRON (ZOFRAN) [Concomitant]
     Indication: NAUSEA
  12. CLONAZEPAM [Concomitant]
     Route: 048
  13. OMEPRAZOLE [Concomitant]

REACTIONS (1)
  - OROPHARYNGEAL CANDIDIASIS [None]
